FAERS Safety Report 5096109-2 (Version None)
Quarter: 2006Q3

REPORT INFORMATION
  Report Type: 
  Country: None (occurrence: None)
  Receive Date: 20060905
  Receipt Date: 20060825
  Transmission Date: 20061208
  Serious: Yes (Hospitalization, Other)
  Sender: FDA-Public Use
  Company Number: FR-BAYER-200610801BFR

PATIENT
  Age: 69 Year
  Sex: Male
  Weight: 75 kg

DRUGS (22)
  1. SORAFENIB [Suspect]
     Indication: RENAL CELL CARCINOMA STAGE UNSPECIFIED
     Dosage: TOTAL DAILY DOSE: 800 MG  UNIT DOSE: 200 MG
     Route: 048
     Dates: start: 20060320, end: 20060411
  2. SORAFENIB [Suspect]
     Dosage: TOTAL DAILY DOSE: 800 MG  UNIT DOSE: 200 MG
     Route: 048
     Dates: start: 20060509, end: 20060612
  3. SORAFENIB [Suspect]
     Dosage: TOTAL DAILY DOSE: 800 MG  UNIT DOSE: 200 MG
     Route: 048
     Dates: start: 20060717, end: 20060821
  4. SORAFENIB [Suspect]
     Dosage: TOTAL DAILY DOSE: 800 MG  UNIT DOSE: 200 MG
     Route: 048
     Dates: start: 20060411, end: 20060509
  5. SORAFENIB [Suspect]
     Dosage: TOTAL DAILY DOSE: 800 MG  UNIT DOSE: 200 MG
     Route: 048
     Dates: start: 20060613, end: 20060717
  6. KAYEXALATE [Concomitant]
     Indication: RENAL FAILURE
     Route: 065
     Dates: start: 20060101
  7. HEMIGOXINE [Concomitant]
     Indication: CARDIAC FAILURE
     Route: 065
     Dates: start: 19910101
  8. VASTEN [Concomitant]
     Indication: HYPERCHOLESTEROLAEMIA
     Route: 065
  9. PREVISCAN [Concomitant]
     Indication: POSTOPERATIVE CARE
     Route: 065
     Dates: start: 20040101, end: 20060601
  10. ALLOPURINOL [Concomitant]
     Indication: RENAL FAILURE
     Route: 065
     Dates: start: 20060101
  11. ZOXAN [Concomitant]
     Indication: UNEVALUABLE EVENT
     Route: 065
  12. PARIET [Concomitant]
     Indication: GASTRIC ULCER
     Route: 065
  13. LASILIX [Concomitant]
     Indication: HYPERTENSION
     Route: 065
  14. AMARYL [Concomitant]
     Indication: DIABETES MELLITUS
     Route: 065
  15. FEROGRAD [Concomitant]
     Indication: ANAEMIA
     Route: 065
     Dates: start: 20060101
  16. IMOVANE [Concomitant]
     Indication: RENAL FAILURE
     Route: 065
     Dates: start: 20060601
  17. DAFALGAN [Concomitant]
     Indication: PAIN
     Route: 065
  18. ASPEGIC 1000 [Concomitant]
     Indication: POSTOPERATIVE CARE
     Route: 065
     Dates: start: 20060601
  19. IMODIUM [Concomitant]
     Indication: DIARRHOEA
     Route: 065
     Dates: start: 20060801
  20. IMODIUM [Concomitant]
     Route: 065
     Dates: start: 20060601, end: 20060801
  21. SMECTA [Concomitant]
     Indication: DIARRHOEA
     Route: 065
     Dates: start: 20060601
  22. QUESTRAN [Concomitant]
     Indication: DIARRHOEA
     Route: 065
     Dates: start: 20060717, end: 20060701

REACTIONS (4)
  - DEHYDRATION [None]
  - DIARRHOEA [None]
  - RENAL FAILURE [None]
  - WEIGHT DECREASED [None]
